FAERS Safety Report 7723295-5 (Version None)
Quarter: 2011Q3

REPORT INFORMATION
  Report Type: 
  Country: None (occurrence: None)
  Receive Date: 20110901
  Receipt Date: 20110408
  Transmission Date: 20111222
  Serious: Yes (Congenital Anomaly)
  Sender: FDA-Public Use
  Company Number: DE-UCBSA-030988

PATIENT

DRUGS (1)
  1. LACOSAMIDE [Suspect]
     Route: 064

REACTIONS (4)
  - CRYPTORCHISM [None]
  - MATERNAL EXPOSURE DURING PREGNANCY [None]
  - CONGENITAL HYDRONEPHROSIS [None]
  - PREMATURE BABY [None]
